FAERS Safety Report 22062525 (Version 1)
Quarter: 2023Q1

REPORT INFORMATION
  Report Type: Spontaneous
  Country: IT (occurrence: IT)
  Receive Date: 20230305
  Receipt Date: 20230305
  Transmission Date: 20230418
  Serious: Yes (Hospitalization, Other)
  Sender: FDA-Public Use
  Company Number: IT-ALKEM LABORATORIES LIMITED-IT-ALKEM-2023-02350

PATIENT
  Age: 71 Year
  Sex: Male

DRUGS (1)
  1. DABIGATRAN ETEXILATE MESYLATE [Suspect]
     Active Substance: DABIGATRAN ETEXILATE MESYLATE
     Indication: Anticoagulant therapy
     Dosage: 150 MILLIGRAM, BID
     Route: 048

REACTIONS (6)
  - Anticoagulant-related nephropathy [Unknown]
  - Subcapsular renal haematoma [Unknown]
  - Haemoptysis [Unknown]
  - Haematuria [Recovering/Resolving]
  - Influenza like illness [Unknown]
  - Epistaxis [Unknown]

NARRATIVE: CASE EVENT DATE: 20180101
